FAERS Safety Report 25628696 (Version 1)
Quarter: 2025Q3

REPORT INFORMATION
  Report Type: Spontaneous
  Country: US (occurrence: US)
  Receive Date: 20250731
  Receipt Date: 20250731
  Transmission Date: 20251020
  Serious: No
  Sender: Tarsus Pharmaceuticals
  Company Number: US-TARSUS PHARMACEUTICALS-TSP-US-2025-000498

PATIENT

DRUGS (1)
  1. XDEMVY [Suspect]
     Active Substance: LOTILANER
     Indication: Arthropod infestation
     Dosage: 1 DROP, BID (1 DROP IN EACH EYE 2 TIMES A DAY FOR 6 WEEKS)
     Route: 047
     Dates: start: 20250521

REACTIONS (2)
  - Product use complaint [Unknown]
  - Extra dose administered [Unknown]
